FAERS Safety Report 16874163 (Version 1)
Quarter: 2019Q4

REPORT INFORMATION
  Report Type: Spontaneous
  Country: BR (occurrence: BR)
  Receive Date: 20191001
  Receipt Date: 20191001
  Transmission Date: 20200122
  Serious: Yes (Death, Hospitalization, Other)
  Sender: FDA-Public Use
  Company Number: BR-APOPHARMA INC-2019AP022633

PATIENT
  Age: 47 Year
  Sex: Female

DRUGS (7)
  1. FERRIPROX [Suspect]
     Active Substance: DEFERIPRONE
     Dosage: UNK
     Route: 048
     Dates: start: 2017, end: 2017
  2. DEFEROXAMINE [Concomitant]
     Active Substance: DEFEROXAMINE MESYLATE
     Indication: IRON OVERLOAD
     Dosage: UNK, 3-5 DAYS/WEEK
     Route: 058
     Dates: start: 2007
  3. FERRIPROX [Suspect]
     Active Substance: DEFERIPRONE
     Indication: SICKLE CELL ANAEMIA
     Dosage: UNK UNK, UNKNOWN
     Route: 065
     Dates: start: 2007
  4. DEFEROXAMINE [Concomitant]
     Active Substance: DEFEROXAMINE MESYLATE
     Dosage: UNK
     Route: 042
     Dates: start: 2017, end: 2017
  5. FERRIPROX [Suspect]
     Active Substance: DEFERIPRONE
     Indication: IRON OVERLOAD
     Dosage: 75 MG/KG, QD
     Route: 065
     Dates: start: 2012
  6. FERRIPROX [Suspect]
     Active Substance: DEFERIPRONE
     Dosage: 30 MG/KG, QD
     Route: 065
     Dates: start: 2012
  7. FERRIPROX [Suspect]
     Active Substance: DEFERIPRONE
     Dosage: 60 MG/KG, QD
     Route: 065
     Dates: start: 2014, end: 2015

REACTIONS (6)
  - Septic shock [Fatal]
  - Cardiac failure [Unknown]
  - Cardiogenic shock [Fatal]
  - Anaemia [Unknown]
  - Abdominal discomfort [Unknown]
  - Diabetes mellitus [Unknown]

NARRATIVE: CASE EVENT DATE: 2007
